FAERS Safety Report 8575345-4 (Version None)
Quarter: 2012Q3

REPORT INFORMATION
  Report Type: 
  Country: None (occurrence: None)
  Receive Date: 20120807
  Receipt Date: 20120731
  Transmission Date: 20120928
  Serious: Yes (Death)
  Sender: FDA-Public Use
  Company Number: US-PFIZER INC-2012190640

PATIENT
  Age: 85 Year
  Sex: Female

DRUGS (3)
  1. AZITHROMYCIN [Suspect]
     Dosage: UNK
  2. ARICEPT [Suspect]
     Dosage: UNK
     Route: 048
     Dates: start: 20120101
  3. ARICEPT [Suspect]
     Indication: DEMENTIA ALZHEIMER'S TYPE
     Dosage: UNK
     Route: 048
     Dates: start: 20120101, end: 20120101

REACTIONS (2)
  - STEVENS-JOHNSON SYNDROME [None]
  - RASH [None]
